FAERS Safety Report 11714701 (Version 1)
Quarter: 2015Q4

REPORT INFORMATION
  Report Type: Spontaneous
  Country: ZA (occurrence: ZA)
  Receive Date: 20151109
  Receipt Date: 20151109
  Transmission Date: 20160304
  Serious: Yes (Other)
  Sender: FDA-Public Use
  Company Number: ZA-BRISTOL-MYERS SQUIBB COMPANY-BMS-2015-073544

PATIENT
  Age: 30 Year
  Sex: Female
  Weight: 50 kg

DRUGS (1)
  1. EFAVIRENZ [Suspect]
     Active Substance: EFAVIRENZ
     Indication: HIV INFECTION
     Route: 065

REACTIONS (6)
  - Hepatic cancer metastatic [Unknown]
  - Premature labour [Unknown]
  - Maternal exposure during pregnancy [Unknown]
  - Live birth [Unknown]
  - Premature delivery [Unknown]
  - Pre-eclampsia [Unknown]
